FAERS Safety Report 19053804 (Version 1)
Quarter: 2021Q1

REPORT INFORMATION
  Report Type: Report from Study
  Country: RO (occurrence: RO)
  Receive Date: 20210324
  Receipt Date: 20210324
  Transmission Date: 20210420
  Serious: Yes (Other)
  Sender: FDA-Public Use
  Company Number: NVSC2021RO063816

PATIENT
  Age: 82 Year
  Sex: Female

DRUGS (1)
  1. EXELON [Suspect]
     Active Substance: RIVASTIGMINE TARTRATE
     Indication: PRODUCT USED FOR UNKNOWN INDICATION
     Dosage: 9.5 MG, QD (18 MG RIVASTIGMINE BASE (PATCH 10 (CM2))
     Route: 065

REACTIONS (5)
  - Walking disability [Unknown]
  - Gait disturbance [Unknown]
  - Parkinson^s disease [Unknown]
  - Nervous system disorder [Unknown]
  - Illness [Unknown]
